FAERS Safety Report 25410550 (Version 2)
Quarter: 2025Q2

REPORT INFORMATION
  Report Type: Report from Study
  Country: CN (occurrence: CN)
  Receive Date: 20250608
  Receipt Date: 20250625
  Transmission Date: 20250717
  Serious: Yes (Other)
  Sender: TAKEDA
  Company Number: CN-TAKEDA-2025TUS051400

PATIENT
  Age: 3 Year
  Sex: Female

DRUGS (4)
  1. TEDUGLUTIDE [Suspect]
     Active Substance: TEDUGLUTIDE
     Indication: Short-bowel syndrome
  2. TEDUGLUTIDE [Suspect]
     Active Substance: TEDUGLUTIDE
     Dosage: 0.68 MILLIGRAM, QD
     Dates: start: 20250613, end: 20250618
  3. TEDUGLUTIDE [Suspect]
     Active Substance: TEDUGLUTIDE
     Dosage: 0.68 MILLIGRAM, QD
     Dates: start: 20250613
  4. TEDUGLUTIDE [Suspect]
     Active Substance: TEDUGLUTIDE

REACTIONS (16)
  - Lactic acidosis [Recovering/Resolving]
  - White blood cells urine abnormal [Unknown]
  - Faecal occult blood positive [Unknown]
  - Escherichia infection [Unknown]
  - Faecal calprotectin abnormal [Unknown]
  - Mesenteric lymphadenitis [Unknown]
  - Proteus test positive [Unknown]
  - Lymphocyte count abnormal [Recovering/Resolving]
  - Blood gases abnormal [Recovering/Resolving]
  - Blood sodium abnormal [Recovering/Resolving]
  - Blood potassium abnormal [Recovering/Resolving]
  - Blood chloride abnormal [Recovering/Resolving]
  - Blood calcium abnormal [Recovering/Resolving]
  - Blood phosphorus abnormal [Recovering/Resolving]
  - Blood magnesium abnormal [Recovering/Resolving]
  - Blood lactate dehydrogenase abnormal [Recovering/Resolving]

NARRATIVE: CASE EVENT DATE: 20250522
